FAERS Safety Report 5125654-6 (Version None)
Quarter: 2006Q4

REPORT INFORMATION
  Report Type: 
  Country: None (occurrence: None)
  Receive Date: 20061012
  Receipt Date: 20060928
  Transmission Date: 20070319
  Serious: Yes (Other)
  Sender: FDA-Public Use
  Company Number: PHBS2006JP15216

PATIENT
  Age: 80 Year
  Sex: Male

DRUGS (9)
  1. DIOVAN [Suspect]
     Indication: HYPERTENSION
     Dosage: 80 MG/DAY
     Route: 048
     Dates: start: 20040101, end: 20060731
  2. NITOROL [Concomitant]
  3. THYRADIN [Concomitant]
  4. ALESION [Concomitant]
  5. MEVALOTIN [Concomitant]
  6. ASPIRIN [Concomitant]
  7. CLEANAL [Concomitant]
  8. SM [Concomitant]
  9. SENNOSIDE [Concomitant]

REACTIONS (1)
  - INTERSTITIAL LUNG DISEASE [None]
